FAERS Safety Report 24162499 (Version 1)
Quarter: 2024Q3

REPORT INFORMATION
  Report Type: Spontaneous
  Country: US (occurrence: US)
  Receive Date: 20240801
  Receipt Date: 20240801
  Transmission Date: 20241017
  Serious: No
  Sender: AMGEN
  Company Number: US-AMGEN-USASP2024149100

PATIENT
  Sex: Female

DRUGS (4)
  1. OTEZLA [Suspect]
     Active Substance: APREMILAST
     Indication: Psoriatic arthropathy
     Dosage: 30 MILLIGRAM, BID
     Route: 048
     Dates: start: 20220928
  2. BETAMETH DIPROPIONATE [Concomitant]
  3. CYANOCOBALAMIN [Concomitant]
     Active Substance: CYANOCOBALAMIN
     Dosage: 1000 MICROGRAM
  4. SETLAKIN [Concomitant]
     Active Substance: ETHINYL ESTRADIOL\LEVONORGESTREL

REACTIONS (3)
  - Rash [Not Recovered/Not Resolved]
  - Therapy non-responder [Unknown]
  - Product dose omission issue [Unknown]
